FAERS Safety Report 9044675 (Version 2)
Quarter: 2013Q1

REPORT INFORMATION
  Report Type: Spontaneous
  Country: US (occurrence: US)
  Receive Date: 20130130
  Receipt Date: 20130328
  Transmission Date: 20140127
  Serious: Yes (Other)
  Sender: FDA-Public Use
  Company Number: US-BAYER-2013-012159

PATIENT
  Age: 30 Year
  Sex: Female
  Weight: 48.98 kg

DRUGS (1)
  1. MIRENA [Suspect]
     Indication: CONTRACEPTION
     Dosage: 20 MCG/24HR, CONT
     Route: 015
     Dates: start: 20100620, end: 20130121

REACTIONS (3)
  - Ectopic pregnancy with intrauterine device [Recovered/Resolved]
  - Drug ineffective [None]
  - Amenorrhoea [None]
